FAERS Safety Report 10355998 (Version 2)
Quarter: 2014Q3

REPORT INFORMATION
  Report Type: Report from Study
  Country: US (occurrence: US)
  Receive Date: 20140801
  Receipt Date: 20140822
  Transmission Date: 20150326
  Serious: Yes (Hospitalization)
  Sender: FDA-Public Use
  Company Number: US-BIOGENIDEC-2014BI073457

PATIENT
  Age: 50 Year
  Sex: Female

DRUGS (1)
  1. TYSABRI [Suspect]
     Active Substance: NATALIZUMAB
     Indication: MULTIPLE SCLEROSIS
     Route: 042
     Dates: start: 20130319

REACTIONS (10)
  - Arthropathy [Recovered/Resolved]
  - Blood iron decreased [Unknown]
  - Fall [Recovered/Resolved]
  - Blood potassium decreased [Recovered/Resolved]
  - White blood cell count increased [Recovered/Resolved]
  - Loss of control of legs [Recovered/Resolved]
  - Stress [Recovered/Resolved]
  - Pneumonia [Not Recovered/Not Resolved]
  - Musculoskeletal disorder [Recovered/Resolved]
  - Fatigue [Recovered/Resolved]

NARRATIVE: CASE EVENT DATE: 201312
